FAERS Safety Report 16338511 (Version 2)
Quarter: 2019Q2

REPORT INFORMATION
  Report Type: Spontaneous
  Country: US (occurrence: US)
  Receive Date: 20190521
  Receipt Date: 20190524
  Transmission Date: 20190711
  Serious: Yes (Death, Hospitalization, Other)
  Sender: FDA-Public Use
  Company Number: US-MALLINCKRODT-T201903887

PATIENT
  Age: 7 Month
  Sex: Male

DRUGS (4)
  1. H.P. ACTHAR [Suspect]
     Active Substance: CORTICOTROPIN
     Dosage: LOW DOSE
     Route: 065
  2. H.P. ACTHAR [Suspect]
     Active Substance: CORTICOTROPIN
     Indication: INFANTILE SPASMS
     Dosage: 150 U/M2/ DAY
     Route: 065
  3. VIGABATRIN. [Suspect]
     Active Substance: VIGABATRIN
     Dosage: TITRATED TO 160 MG/KG/DAY
     Route: 065
  4. VIGABATRIN. [Suspect]
     Active Substance: VIGABATRIN
     Indication: INFANTILE SPASMS
     Dosage: UNK
     Route: 065

REACTIONS (9)
  - Infantile spasms [Unknown]
  - Somnolence [Unknown]
  - Drug ineffective [Unknown]
  - Toxicity to various agents [Fatal]
  - Respiratory distress [Unknown]
  - Autonomic nervous system imbalance [Unknown]
  - Choreoathetosis [Unknown]
  - Vital functions abnormal [Unknown]
  - Tardive dyskinesia [Unknown]
